FAERS Safety Report 26124617 (Version 1)
Quarter: 2025Q4

REPORT INFORMATION
  Report Type: Spontaneous
  Country: EU (occurrence: EU)
  Receive Date: 20251205
  Receipt Date: 20251205
  Transmission Date: 20260117
  Serious: Yes (Life-Threatening, Hospitalization, Other)
  Sender: ACCORD
  Company Number: EU-Accord-516549

PATIENT
  Age: 65 Year
  Sex: Male

DRUGS (1)
  1. METHOTREXATE [Suspect]
     Active Substance: METHOTREXATE
     Indication: Rheumatoid arthritis
     Dosage: LOW-TO-MODERATE DOSE

REACTIONS (6)
  - Meningitis pneumococcal [Recovered/Resolved]
  - Pneumonia pneumococcal [Recovered/Resolved]
  - Endocarditis bacterial [Recovered/Resolved]
  - Endophthalmitis [Recovered/Resolved]
  - Intervertebral discitis [Recovered/Resolved]
  - Epilepsy [Unknown]
